FAERS Safety Report 12863725 (Version 3)
Quarter: 2017Q2

REPORT INFORMATION
  Report Type: Report from Study
  Country: None (occurrence: GB)
  Receive Date: 20161019
  Receipt Date: 20170524
  Transmission Date: 20170830
  Serious: Yes (Other)
  Sender: FDA-Public Use
  Company Number: GB-ABBVIE-16K-167-1755886-00

PATIENT
  Sex: Female

DRUGS (1)
  1. HUMIRA [Suspect]
     Active Substance: ADALIMUMAB
     Indication: PRODUCT USED FOR UNKNOWN INDICATION
     Route: 058

REACTIONS (6)
  - Arthralgia [Unknown]
  - Muscle injury [Unknown]
  - Cellulitis [Not Recovered/Not Resolved]
  - Enthesopathy [Unknown]
  - Musculoskeletal pain [Unknown]
  - Pain in extremity [Unknown]
